FAERS Safety Report 13946895 (Version 3)
Quarter: 2018Q3

REPORT INFORMATION
  Report Type: Spontaneous
  Country: US (occurrence: US)
  Receive Date: 20170907
  Receipt Date: 20180918
  Transmission Date: 20181010
  Serious: Yes (Hospitalization, Other)
  Sender: FDA-Public Use
  Company Number: US-DSJP-DSU-2017-135430

PATIENT

DRUGS (5)
  1. AZOR [Suspect]
     Active Substance: AMLODIPINE BESYLATE\OLMESARTAN MEDOXOMIL
     Indication: PRODUCT USED FOR UNKNOWN INDICATION
     Dosage: 5/40 MG, QD
     Route: 048
  2. BENICAR [Suspect]
     Active Substance: OLMESARTAN MEDOXOMIL
     Dosage: 40 MG, QD
     Dates: start: 20120117, end: 20161109
  3. TRIBENZOR [Suspect]
     Active Substance: AMLODIPINE BESYLATE\HYDROCHLOROTHIAZIDE\OLMESARTAN MEDOXOMIL
     Indication: PRODUCT USED FOR UNKNOWN INDICATION
     Dosage: 10/12.5/40MG, QD
     Route: 048
     Dates: start: 20160927, end: 20161201
  4. TRIBENZOR [Suspect]
     Active Substance: AMLODIPINE BESYLATE\HYDROCHLOROTHIAZIDE\OLMESARTAN MEDOXOMIL
     Dosage: 40/5/25 MG, QD
     Route: 048
     Dates: start: 20160927, end: 20161201
  5. BENICAR [Suspect]
     Active Substance: OLMESARTAN MEDOXOMIL
     Indication: PRODUCT USED FOR UNKNOWN INDICATION
     Dosage: 20 MG, DAILY
     Dates: end: 20120117

REACTIONS (8)
  - Cholecystitis chronic [Recovered/Resolved]
  - Acute kidney injury [Recovered/Resolved]
  - Hypotension [Unknown]
  - Diverticulum intestinal [Unknown]
  - Constipation [Unknown]
  - Crohn^s disease [Unknown]
  - Sprue-like enteropathy [Recovering/Resolving]
  - Clostridium difficile colitis [Unknown]

NARRATIVE: CASE EVENT DATE: 2016
